FAERS Safety Report 8185940-2 (Version None)
Quarter: 2012Q1

REPORT INFORMATION
  Report Type: 
  Country: None (occurrence: None)
  Receive Date: 20120305
  Receipt Date: 20120301
  Transmission Date: 20120608
  Serious: Yes (Death, Other)
  Sender: FDA-Public Use
  Company Number: US-ASTRAZENECA-2011SE68542

PATIENT
  Age: 50 Year
  Sex: Male

DRUGS (3)
  1. DEPAKOTE [Concomitant]
     Dosage: HIGH DOSES
  2. IBUPROFEN [Concomitant]
     Dosage: HIGH DOSES
  3. SEROQUEL [Suspect]
     Route: 048
     Dates: start: 20040101

REACTIONS (5)
  - HIP DEFORMITY [None]
  - HEMIPLEGIA [None]
  - ARTHRALGIA [None]
  - GAIT DISTURBANCE [None]
  - APLASTIC ANAEMIA [None]
